FAERS Safety Report 18156925 (Version 1)
Quarter: 2020Q3

REPORT INFORMATION
  Report Type: Spontaneous
  Country: US (occurrence: US)
  Receive Date: 20200817
  Receipt Date: 20200817
  Transmission Date: 20201103
  Serious: Yes (Hospitalization)
  Sender: FDA-Public Use
  Company Number: None

PATIENT
  Age: 74 Year
  Sex: Male
  Weight: 97.2 kg

DRUGS (16)
  1. AMLODIPINE [Concomitant]
     Active Substance: AMLODIPINE BESYLATE
  2. TERBINAFINE. [Concomitant]
     Active Substance: TERBINAFINE
  3. LORATADINE. [Concomitant]
     Active Substance: LORATADINE
  4. FENOFIBRATE. [Concomitant]
     Active Substance: FENOFIBRATE
  5. KETOCONAZOLE. [Concomitant]
     Active Substance: KETOCONAZOLE
  6. SINGULAIR [Concomitant]
     Active Substance: MONTELUKAST SODIUM
  7. METFORMIN [Concomitant]
     Active Substance: METFORMIN HYDROCHLORIDE
  8. ATORVASTATIN [Concomitant]
     Active Substance: ATORVASTATIN
  9. ZOLADEX [Concomitant]
     Active Substance: GOSERELIN ACETATE
  10. METAMUCIL [Concomitant]
     Active Substance: PLANTAGO SEED
  11. ABIRATERONE. [Suspect]
     Active Substance: ABIRATERONE ACETATE
     Indication: PROSTATE CANCER
     Route: 048
     Dates: start: 20181221
  12. ASPIRIN. [Concomitant]
     Active Substance: ASPIRIN
  13. BICALUTAMIDE. [Concomitant]
     Active Substance: BICALUTAMIDE
  14. LOSARTAN. [Concomitant]
     Active Substance: LOSARTAN
  15. TAMSULOSIN [Concomitant]
     Active Substance: TAMSULOSIN
  16. TYLENOL [Concomitant]
     Active Substance: ACETAMINOPHEN

REACTIONS (1)
  - Myocardial infarction [None]

NARRATIVE: CASE EVENT DATE: 20200815
